FAERS Safety Report 11102454 (Version 1)
Quarter: 2015Q2

REPORT INFORMATION
  Report Type: Spontaneous
  Country: US (occurrence: None)
  Receive Date: 20150507
  Receipt Date: 20150507
  Transmission Date: 20150821
  Serious: Yes (Other)
  Sender: FDA-Public Use
  Company Number: ADR-2015-00886

PATIENT
  Age: 39 Year
  Sex: Male

DRUGS (2)
  1. BACLOFEN INTRATHECAL [Suspect]
     Active Substance: BACLOFEN
     Indication: MUSCLE SPASTICITY
  2. MORPHINE INTRATHECAL (OLD) [Suspect]
     Active Substance: MORPHINE

REACTIONS (6)
  - Treatment noncompliance [None]
  - Feeling abnormal [None]
  - Device malfunction [None]
  - Dystonia [None]
  - Malaise [None]
  - Drug withdrawal syndrome [None]

NARRATIVE: CASE EVENT DATE: 20030729
